FAERS Safety Report 10707386 (Version 1)
Quarter: 2015Q1

REPORT INFORMATION
  Report Type: Spontaneous
  Country: US (occurrence: None)
  Receive Date: 20150112
  Receipt Date: 20150112
  Transmission Date: 20150721
  Serious: Yes (Life-Threatening)
  Sender: FDA-Public Use
  Company Number: None

PATIENT
  Age: 67 Year
  Sex: Male
  Weight: 126.2 kg

DRUGS (1)
  1. DEXTROSE/HEPARIN [Suspect]
     Active Substance: DEXTROSE\HEPARIN
     Indication: ATRIAL FIBRILLATION
     Route: 042
     Dates: start: 20141218, end: 20141229

REACTIONS (3)
  - Peripheral ischaemia [None]
  - Thrombocytopenia [None]
  - Thrombosis [None]

NARRATIVE: CASE EVENT DATE: 20150107
